FAERS Safety Report 18946659 (Version 1)
Quarter: 2021Q1

REPORT INFORMATION
  Report Type: Spontaneous
  Country: US (occurrence: US)
  Receive Date: 20210226
  Receipt Date: 20210226
  Transmission Date: 20210420
  Serious: Yes (Hospitalization, Other)
  Sender: FDA-Public Use
  Company Number: US-ELI_LILLY_AND_COMPANY-US202102007953

PATIENT
  Age: 62 Year
  Sex: Male

DRUGS (1)
  1. GEMCITABINE HYDROCHLORIDE. [Suspect]
     Active Substance: GEMCITABINE HYDROCHLORIDE
     Indication: PRODUCT USED FOR UNKNOWN INDICATION
     Dosage: UNK UNK, UNKNOWN
     Route: 065

REACTIONS (8)
  - Thrombosis [Recovered/Resolved with Sequelae]
  - Malignant neoplasm progression [Recovered/Resolved with Sequelae]
  - Oedema peripheral [Not Recovered/Not Resolved]
  - Lymphadenopathy [Recovered/Resolved with Sequelae]
  - Erythema [Recovered/Resolved with Sequelae]
  - Blood albumin decreased [Recovered/Resolved with Sequelae]
  - Pulmonary embolism [Recovered/Resolved with Sequelae]
  - Weight increased [Recovered/Resolved with Sequelae]

NARRATIVE: CASE EVENT DATE: 20210114
